FAERS Safety Report 22710193 (Version 2)
Quarter: 2023Q4

REPORT INFORMATION
  Report Type: Spontaneous
  Country: US (occurrence: US)
  Receive Date: 20230717
  Receipt Date: 20231018
  Transmission Date: 20240109
  Serious: No
  Sender: FDA-Public Use
  Company Number: US-BRISTOL-MYERS SQUIBB COMPANY-2023-100233

PATIENT
  Age: 76 Year
  Sex: Female

DRUGS (2)
  1. OPDIVO [Suspect]
     Active Substance: NIVOLUMAB
     Indication: Lung carcinoma cell type unspecified stage 0
     Dosage: DOSE: 360 MG, FREQ: EVERY 3 WEEKS?ROUTE OF ADMINISTRATION: INFUSION
  2. OPDIVO [Suspect]
     Active Substance: NIVOLUMAB
     Dosage: DOSE: 360 MG, FREQ: EVERY 3 WEEKS?ROUTE OF ADMINISTRATION: INFUSION

REACTIONS (1)
  - Intentional product use issue [Unknown]
